FAERS Safety Report 15544820 (Version 2)
Quarter: 2018Q4

REPORT INFORMATION
  Report Type: Report from Study
  Country: None (occurrence: US)
  Receive Date: 20181024
  Receipt Date: 20181029
  Transmission Date: 20190205
  Serious: Yes (Death, Hospitalization, Other)
  Sender: FDA-Public Use
  Company Number: US-ABBVIE-18K-163-2526814-00

PATIENT
  Age: 57 Year
  Sex: Male
  Weight: 49.49 kg

DRUGS (7)
  1. CREON [Suspect]
     Active Substance: PANCRELIPASE AMYLASE\PANCRELIPASE LIPASE\PANCRELIPASE PROTEASE
     Route: 048
     Dates: start: 2018
  2. METFORMIN [Concomitant]
     Active Substance: METFORMIN HYDROCHLORIDE
     Indication: TYPE 2 DIABETES MELLITUS
  3. CREON [Suspect]
     Active Substance: PANCRELIPASE AMYLASE\PANCRELIPASE LIPASE\PANCRELIPASE PROTEASE
     Indication: PANCREATIC CARCINOMA
     Dosage: 1 CAPSULE WITH MEALS
     Route: 048
     Dates: start: 201808
  4. FENTANYL. [Concomitant]
     Active Substance: FENTANYL
     Indication: ABDOMINAL PAIN UPPER
  5. OXYCODONE [Concomitant]
     Active Substance: OXYCODONE
     Indication: PANCREATIC CARCINOMA
  6. FENTANYL. [Concomitant]
     Active Substance: FENTANYL
     Indication: PANCREATIC CARCINOMA
  7. OXYCODONE [Concomitant]
     Active Substance: OXYCODONE
     Indication: ABDOMINAL PAIN UPPER

REACTIONS (9)
  - Hospitalisation [Unknown]
  - Confusional state [Not Recovered/Not Resolved]
  - Hypophagia [Not Recovered/Not Resolved]
  - Biliary sepsis [Unknown]
  - Skin discolouration [Not Recovered/Not Resolved]
  - Bacterial infection [Unknown]
  - Abdominal pain [Unknown]
  - Peripheral coldness [Not Recovered/Not Resolved]
  - Pancreatic carcinoma metastatic [Fatal]

NARRATIVE: CASE EVENT DATE: 2018
